FAERS Safety Report 15110204 (Version 2)
Quarter: 2018Q3

REPORT INFORMATION
  Report Type: Spontaneous
  Country: CZ (occurrence: CZ)
  Receive Date: 20180705
  Receipt Date: 20180827
  Transmission Date: 20181010
  Serious: Yes (Other)
  Sender: FDA-Public Use
  Company Number: CZ-TEVA-2018-CZ-920088

PATIENT
  Age: 71 Year
  Sex: Male

DRUGS (7)
  1. QUETIAPINE. [Suspect]
     Active Substance: QUETIAPINE
     Dosage: 100 MILLIGRAM DAILY;
     Route: 048
  2. LEVODOPA / CARBIDOPA / ENTACAPONE [Concomitant]
  3. RIVASTIGMINE. [Concomitant]
     Active Substance: RIVASTIGMINE
  4. QUETIAPINE. [Suspect]
     Active Substance: QUETIAPINE
     Dosage: 50 MILLIGRAM DAILY;
     Route: 065
  5. SERTRALINE [Suspect]
     Active Substance: SERTRALINE HYDROCHLORIDE
     Dosage: 150 MILLIGRAM DAILY;
     Route: 065
  6. OXAZEPAM. [Suspect]
     Active Substance: OXAZEPAM
     Route: 065
  7. LEVODOPA / CARBIDOPA [Concomitant]

REACTIONS (5)
  - Gait inability [Unknown]
  - Aggression [Unknown]
  - Psychotic disorder [Unknown]
  - Depression [Unknown]
  - Parkinson^s disease [Unknown]
